FAERS Safety Report 20478573 (Version 6)
Quarter: 2022Q2

REPORT INFORMATION
  Report Type: Report from Study
  Country: US (occurrence: US)
  Receive Date: 20220216
  Receipt Date: 20220511
  Transmission Date: 20220720
  Serious: Yes (Hospitalization, Other)
  Sender: FDA-Public Use
  Company Number: US-GILEAD-2022-0569996

PATIENT
  Age: 56 Year
  Sex: Female

DRUGS (6)
  1. AMBRISENTAN [Suspect]
     Active Substance: AMBRISENTAN
     Indication: Pulmonary arterial hypertension
     Dosage: 5 MG, QD
     Route: 048
     Dates: start: 20210803
  2. AMBRISENTAN [Suspect]
     Active Substance: AMBRISENTAN
     Indication: Pulmonary arterial hypertension
     Dosage: UNK
     Route: 048
  3. FLOLAN [Suspect]
     Active Substance: EPOPROSTENOL SODIUM
     Indication: Pulmonary arterial hypertension
     Dosage: 9 NG/KG/MIN (CONC- 10,000 NG/ML, PUMP RATE WAS 72 ML/DAY)
     Route: 065
     Dates: start: 20210210
  4. FLOLAN [Suspect]
     Active Substance: EPOPROSTENOL SODIUM
     Dosage: UNK
     Route: 065
     Dates: start: 20210210
  5. TADALAFIL [Concomitant]
     Active Substance: TADALAFIL
     Indication: Product used for unknown indication
     Dosage: UNK
  6. UPTRAVI [Concomitant]
     Active Substance: SELEXIPAG

REACTIONS (12)
  - Device malfunction [Unknown]
  - Catheter placement [Unknown]
  - Vascular device infection [Unknown]
  - Thrombosis in device [Unknown]
  - Catheter site erythema [Not Recovered/Not Resolved]
  - Catheter site irritation [Not Recovered/Not Resolved]
  - Catheter site vesicles [Not Recovered/Not Resolved]
  - Catheter site pruritus [Unknown]
  - Hypersensitivity [Not Recovered/Not Resolved]
  - Injection site reaction [Unknown]
  - Flushing [Unknown]
  - Arthralgia [Unknown]
